FAERS Safety Report 8078096-8 (Version None)
Quarter: 2012Q1

REPORT INFORMATION
  Report Type: 
  Country: None (occurrence: None)
  Receive Date: 20120127
  Receipt Date: 20110108
  Transmission Date: 20120608
  Serious: No
  Sender: FDA-Public Use
  Company Number: US-ABBOTT-11P-163-0696172-0N

PATIENT
  Age: 54 Year
  Sex: Female

DRUGS (10)
  1. POTASSIUM [Concomitant]
     Indication: PRODUCT USED FOR UNKNOWN INDICATION
  2. FOLIC ACID [Concomitant]
     Indication: PRODUCT USED FOR UNKNOWN INDICATION
  3. HUMIRA [Suspect]
     Indication: RHEUMATOID ARTHRITIS
     Dates: start: 20090101
  4. DIOVAN [Concomitant]
     Indication: HYPERTENSION
  5. LASIX [Concomitant]
     Indication: SWELLING
  6. CRESTOR [Concomitant]
     Indication: BLOOD CHOLESTEROL INCREASED
  7. METHOTREXATE [Concomitant]
     Indication: PRODUCT USED FOR UNKNOWN INDICATION
     Dosage: PATIENT DECIDED NUMNER OF TABLETS TO TAKE
  8. METOLAZONE [Concomitant]
     Indication: FLUID IMBALANCE
  9. METOLAZONE [Concomitant]
     Indication: SWELLING
  10. CALCIUM CARBONATE [Concomitant]
     Indication: MINERAL SUPPLEMENTATION

REACTIONS (5)
  - DIZZINESS [None]
  - CARPAL TUNNEL SYNDROME [None]
  - MALAISE [None]
  - HYPOTENSION [None]
  - BLOOD GLUCOSE INCREASED [None]
